FAERS Safety Report 24734838 (Version 1)
Quarter: 2024Q4

REPORT INFORMATION
  Report Type: Spontaneous
  Country: US (occurrence: US)
  Receive Date: 20241215
  Receipt Date: 20241215
  Transmission Date: 20250115
  Serious: No
  Sender: DR REDDYS
  Company Number: US-DRL-USA-SPO/USA/24/0018109

PATIENT
  Age: 33 Year
  Sex: Female

DRUGS (2)
  1. ACCUTANE [Suspect]
     Active Substance: ISOTRETINOIN
     Indication: Acne
     Dosage: ACCUTANE (ISOTRETINOIN CAPSULES, USP) 30 MG, BOX OF 30 (3 PACKS OF 10 CAPSULES)??30MG TWICE DAILY
     Dates: start: 20240601
  2. ACCUTANE [Suspect]
     Active Substance: ISOTRETINOIN
     Dosage: ACCUTANE (ISOTRETINOIN CAPSULES, USP) 30 MG, BOX OF 30 (3 PACKS OF 10 CAPSULES)??THE PRESCRIBER REDU

REACTIONS (2)
  - Dry skin [Recovering/Resolving]
  - Skin fissures [Unknown]

NARRATIVE: CASE EVENT DATE: 20240731
